FAERS Safety Report 7092946-3 (Version None)
Quarter: 2010Q4

REPORT INFORMATION
  Report Type: 
  Country: None (occurrence: None)
  Receive Date: 20101110
  Receipt Date: 20101103
  Transmission Date: 20110411
  Serious: Yes (Other)
  Sender: FDA-Public Use
  Company Number: US-PFIZER INC-2010140006

PATIENT
  Sex: Female
  Weight: 73 kg

DRUGS (9)
  1. SERTRALINE HYDROCHLORIDE [Suspect]
     Indication: DEPRESSION
     Dosage: 50 MG, UNK
     Route: 048
     Dates: start: 20100923
  2. MORPHINE SULFATE/NALTREXONE HYDROCHLORIDE [Suspect]
     Indication: NECK PAIN
     Dosage: 20 MG DAILY
     Route: 048
     Dates: start: 20100923
  3. CARBAMAZEPINE [Concomitant]
     Dosage: UNK
  4. TIZANIDINE [Concomitant]
     Dosage: UNK
  5. ACYCLOVIR SODIUM [Concomitant]
     Dosage: UNK
  6. METHOTREXATE [Concomitant]
     Dosage: UNK
  7. MOCLOBEMIDE [Concomitant]
     Dosage: UNK
  8. PREDNISONE [Concomitant]
     Dosage: UNK
  9. ZOLPIDEM [Concomitant]
     Dosage: UNK

REACTIONS (1)
  - WEIGHT INCREASED [None]
